FAERS Safety Report 9093598 (Version 1)
Quarter: 2013Q1

REPORT INFORMATION
  Report Type: Spontaneous
  Country: PR (occurrence: PR)
  Receive Date: 20130131
  Receipt Date: 20130131
  Transmission Date: 20140127
  Serious: No
  Sender: FDA-Public Use
  Company Number: PR-ABBOTT-12P-131-0949719-00

PATIENT
  Sex: Female
  Weight: 118 kg

DRUGS (7)
  1. HUMIRA [Suspect]
     Indication: RHEUMATOID ARTHRITIS
     Route: 058
     Dates: start: 2009, end: 201206
  2. HUMIRA [Suspect]
     Dates: start: 20120726, end: 201209
  3. ARAVA [Concomitant]
     Indication: PRODUCT USED FOR UNKNOWN INDICATION
     Route: 048
  4. PREDNISONE [Concomitant]
     Indication: RHEUMATOID ARTHRITIS
     Route: 048
     Dates: end: 201208
  5. PREDNISONE [Concomitant]
     Route: 048
     Dates: start: 201208
  6. PREDNISONE [Concomitant]
     Route: 048
  7. ULTRACET [Concomitant]
     Indication: PAIN
     Route: 048

REACTIONS (3)
  - Nasopharyngitis [Recovered/Resolved]
  - Hypertension [Recovered/Resolved]
  - Musculoskeletal stiffness [Not Recovered/Not Resolved]
